FAERS Safety Report 7522083-2 (Version None)
Quarter: 2011Q2

REPORT INFORMATION
  Report Type: 
  Country: None (occurrence: None)
  Receive Date: 20110520
  Receipt Date: 20110329
  Transmission Date: 20111010
  Serious: Yes (Other)
  Sender: FDA-Public Use
  Company Number: 2011028057

PATIENT
  Age: 55 Year
  Sex: Female
  Weight: 115.2136 kg

DRUGS (17)
  1. LISINOPRIL [Concomitant]
  2. XANAX [Concomitant]
  3. EPIPEN [Concomitant]
  4. CYMBALTA [Concomitant]
  5. ACETAMINOPHEN [Concomitant]
  6. BUSPIRONE HCL [Concomitant]
  7. HIZENTRA [Suspect]
     Indication: IMMUNODEFICIENCY COMMON VARIABLE
     Dosage: (12 G 1X/WEEK, 4 GM 20 ML VIAL: 60 ML FOR 1-2 HOUR SUBCUTANEOUS)
     Route: 058
     Dates: start: 20110304
  8. PEPCID [Concomitant]
  9. FEXOFENADINE HCL [Concomitant]
  10. SYNTHROID [Concomitant]
  11. ZYRTEC [Concomitant]
  12. IBUPROFEN [Concomitant]
  13. ADVAIR DISKUS 100/50 [Concomitant]
  14. WELLBUTRIN [Concomitant]
  15. ALBUTEROL [Concomitant]
  16. LISINOPRIL [Concomitant]
  17. DIPHENHYDRAMINE HCL [Concomitant]

REACTIONS (1)
  - RESPIRATORY TRACT INFECTION [None]
